FAERS Safety Report 18914358 (Version 1)
Quarter: 2021Q1

REPORT INFORMATION
  Report Type: Report from Study
  Country: BR (occurrence: BR)
  Receive Date: 20210218
  Receipt Date: 20210218
  Transmission Date: 20210420
  Serious: Yes (Life-Threatening, Other)
  Sender: FDA-Public Use
  Company Number: BR-GILEAD-2020-0492063

PATIENT
  Age: 47 Year
  Sex: Male
  Weight: 70 kg

DRUGS (20)
  1. LEVOFLOXACIN. [Concomitant]
     Active Substance: LEVOFLOXACIN
     Indication: PNEUMONIA
     Dates: start: 20200825, end: 20200831
  2. ENOXAPARIN [Concomitant]
     Active Substance: ENOXAPARIN
     Indication: COVID-19
     Dates: start: 20200805
  3. NORADRENALINE [NOREPINEPHRINE] [Concomitant]
     Active Substance: NOREPINEPHRINE
     Indication: SHOCK
     Dates: start: 20200805, end: 20200814
  4. PROPOFOL. [Concomitant]
     Active Substance: PROPOFOL
     Indication: SEDATION
     Dates: start: 20200826
  5. NITRIC OXIDE. [Concomitant]
     Active Substance: NITRIC OXIDE
     Indication: HYPOXIA
     Dates: start: 20200815
  6. ADRENALINE [EPINEPHRINE] [Concomitant]
     Active Substance: EPINEPHRINE
     Indication: STOMATITIS
     Dates: start: 20200821
  7. AZITHROMYCIN ANHYDROUS. [Concomitant]
     Active Substance: AZITHROMYCIN ANHYDROUS
     Indication: COVID-19
     Dates: start: 20200805, end: 20200807
  8. TOCILIZUMAB. [Suspect]
     Active Substance: TOCILIZUMAB
     Indication: COVID-19 PNEUMONIA
     Dosage: DATE OF MOST RECENT DOSE OF BLINDED TOCILIZUMAB PRIOR TO AE ONSET: 07?AUG?2020 AT 17:39
     Route: 042
     Dates: start: 20200807
  9. VANCOMYCIN [Suspect]
     Active Substance: VANCOMYCIN
     Indication: SEPTIC SHOCK
     Route: 065
     Dates: start: 20200821, end: 20200830
  10. TAZOCIN [Concomitant]
     Active Substance: PIPERACILLIN SODIUM\TAZOBACTAM SODIUM
     Indication: LEUKOCYTOSIS
     Dates: start: 20200819, end: 20200830
  11. ROCURONIO [Concomitant]
     Active Substance: ROCURONIUM BROMIDE
     Dates: start: 20200805, end: 20200817
  12. DIAZEPAM. [Concomitant]
     Active Substance: DIAZEPAM
  13. FENTANIL [Concomitant]
     Active Substance: FENTANYL
     Indication: SEDATION
     Dates: start: 20200805, end: 20200824
  14. SIMVASTATIN. [Concomitant]
     Active Substance: SIMVASTATIN
  15. ASA [Concomitant]
     Active Substance: ASPIRIN
     Dates: start: 20200818
  16. SINVASTATINA [Concomitant]
     Active Substance: SIMVASTATIN
     Indication: COVID-19
     Dates: start: 20200818
  17. MIDAZOLAM. [Concomitant]
     Active Substance: MIDAZOLAM
     Indication: SEDATION
     Dates: start: 20200808, end: 20200827
  18. REMDESIVIR. [Suspect]
     Active Substance: REMDESIVIR
     Indication: COVID-19 PNEUMONIA
     Dosage: 200 MG, MOST RECENT DOSE OF REMDESIVIR PRIOR TO AE ONSET 16/AUG/2020 AT 12:43
     Route: 042
     Dates: start: 20200807
  19. PROPOFOL. [Concomitant]
     Active Substance: PROPOFOL
     Dates: start: 20200805, end: 20200824
  20. NOREPINEPHRINE. [Concomitant]
     Active Substance: NOREPINEPHRINE
     Indication: SHOCK
     Dates: start: 20200815, end: 20200825

REACTIONS (2)
  - Acute kidney injury [Not Recovered/Not Resolved]
  - Septic shock [Not Recovered/Not Resolved]

NARRATIVE: CASE EVENT DATE: 20200821
